FAERS Safety Report 10361232 (Version 1)
Quarter: 2014Q3

REPORT INFORMATION
  Report Type: Spontaneous
  Country: US (occurrence: None)
  Receive Date: 20140731
  Receipt Date: 20140731
  Transmission Date: 20150326
  Serious: Yes (Hospitalization)
  Sender: FDA-Public Use
  Company Number: 2457060

PATIENT
  Age: 8 Year
  Sex: Female

DRUGS (8)
  1. (METHOTREXATE) [Suspect]
     Active Substance: METHOTREXATE
     Indication: B PRECURSOR TYPE ACUTE LEUKAEMIA
  2. (CYTARABINE) [Suspect]
     Active Substance: CYTARABINE
     Indication: B PRECURSOR TYPE ACUTE LEUKAEMIA
     Dosage: NOT REPORTED , UNKNOWN, UNKNOWN  UNKNOWN THERAPY
  3. (DOXORUBICIN) [Suspect]
     Active Substance: DOXORUBICIN
     Indication: B PRECURSOR TYPE ACUTE LEUKAEMIA
  4. (PEG-ASPARAGINASE) [Suspect]
     Active Substance: PEGASPARGASE
     Indication: B PRECURSOR TYPE ACUTE LEUKAEMIA
     Dosage: NOT REPORTED (UNKNOWN) UNKNOWN RT OF ADMINISTRATION UNKNOWN THERAPY DATES
  5. (VINCRISTINE SULFATE) [Suspect]
     Active Substance: VINCRISTINE SULFATE
     Indication: B PRECURSOR TYPE ACUTE LEUKAEMIA
     Dosage: NOT REPORTED , UNKNOWN, UNKNOWN UNKNOWN THERAPY DATES
  6. (6-MERCAPTOPURINE MONOHYDRATE) [Suspect]
     Active Substance: MERCAPTOPURINE
     Indication: B PRECURSOR TYPE ACUTE LEUKAEMIA
     Dosage: NOT REPORTED (UNKNOWN) (UNKNOWN -UNKNOWN (UNKNOWN)
  7. (CYCLOPHOSPHAMIDE) [Suspect]
     Active Substance: CYCLOPHOSPHAMIDE
     Indication: B PRECURSOR TYPE ACUTE LEUKAEMIA
     Dosage: NOT REPORTED (UNKNOWN) DAILY DOSE) UNKNOWN -UNKNOWN (UNKNOWN) THERAPY DATES
  8. (THIOGUANINE) [Suspect]
     Active Substance: THIOGUANINE
     Indication: B PRECURSOR TYPE ACUTE LEUKAEMIA
     Dosage: (NOT REPORTED (UNIKNOWN THERAPY DATES UNKNOWN - UNKNOWN-(UNKNOWN)

REACTIONS (2)
  - Porphyria non-acute [None]
  - Hypertrichosis [None]
